FAERS Safety Report 18382840 (Version 1)
Quarter: 2020Q4

REPORT INFORMATION
  Report Type: Spontaneous
  Country: BR (occurrence: BR)
  Receive Date: 20201014
  Receipt Date: 20201014
  Transmission Date: 20210114
  Serious: Yes (Other)
  Sender: FDA-Public Use
  Company Number: NVSC2020BR274036

PATIENT
  Age: 53 Year
  Sex: Female

DRUGS (5)
  1. SANDOSTATIN LAR DEPOT [Suspect]
     Active Substance: OCTREOTIDE ACETATE
  2. SANDOSTATIN LAR DEPOT [Suspect]
     Active Substance: OCTREOTIDE ACETATE
     Indication: NEUROENDOCRINE TUMOUR
     Dosage: UNK
     Route: 065
     Dates: start: 201304
  3. ZOLEDRONIC ACID [Suspect]
     Active Substance: ZOLEDRONIC ACID
     Indication: PRODUCT USED FOR UNKNOWN INDICATION
     Dosage: UNK
     Route: 065
     Dates: start: 201304
  4. EVEROLIMUS. [Suspect]
     Active Substance: EVEROLIMUS
     Indication: PRODUCT USED FOR UNKNOWN INDICATION
     Dosage: UNK
     Route: 065
     Dates: start: 201803
  5. SANDOSTATIN LAR DEPOT [Suspect]
     Active Substance: OCTREOTIDE ACETATE
     Indication: CARCINOID TUMOUR

REACTIONS (20)
  - Lymphadenopathy mediastinal [Unknown]
  - Dyspepsia [Unknown]
  - Renal injury [Unknown]
  - Bone pain [Unknown]
  - Biliary dilatation [Unknown]
  - Skin lesion [Unknown]
  - Toxicity to various agents [Unknown]
  - Hydronephrosis [Unknown]
  - Pyelocaliectasis [Unknown]
  - Weight decreased [Unknown]
  - Vomiting [Unknown]
  - Metastases to pancreas [Unknown]
  - Drug intolerance [Unknown]
  - Metastases to retroperitoneum [Unknown]
  - Ureteric obstruction [Unknown]
  - Metastases to liver [Unknown]
  - Malignant neoplasm progression [Unknown]
  - Bone lesion [Unknown]
  - Lymphadenopathy [Unknown]
  - Spleen disorder [Unknown]

NARRATIVE: CASE EVENT DATE: 201805
